FAERS Safety Report 11392260 (Version 1)
Quarter: 2015Q3

REPORT INFORMATION
  Report Type: Spontaneous
  Country: US (occurrence: None)
  Receive Date: 20150817
  Receipt Date: 20150817
  Transmission Date: 20151125
  Serious: Yes (Other)
  Sender: FDA-Public Use
  Company Number: 2013P1019743

PATIENT
  Age: 16 Year
  Sex: Female
  Weight: 67 kg

DRUGS (1)
  1. OXTELLAR XR [Suspect]
     Active Substance: OXCARBAZEPINE
     Indication: PARTIAL SEIZURES
     Route: 048
     Dates: start: 20130823, end: 201308

REACTIONS (7)
  - Headache [None]
  - Myalgia [None]
  - Erythema multiforme [None]
  - Rash [None]
  - Stomatitis [None]
  - Mucosal inflammation [None]
  - Stevens-Johnson syndrome [None]

NARRATIVE: CASE EVENT DATE: 20130902
